FAERS Safety Report 23712958 (Version 1)
Quarter: 2024Q2

REPORT INFORMATION
  Report Type: Spontaneous
  Country: US (occurrence: None)
  Receive Date: 20240405
  Receipt Date: 20240405
  Transmission Date: 20240716
  Serious: Yes (Hospitalization)
  Sender: FDA-Public Use
  Company Number: None

PATIENT
  Sex: Female

DRUGS (7)
  1. GAMMAGARD LIQUID [Suspect]
     Active Substance: HUMAN IMMUNOGLOBULIN G
     Indication: Systemic lupus erythematosus
     Dosage: 60 GM EVERY 2 WEEKS INTRAVENOUSLY?
     Route: 042
     Dates: start: 202205
  2. DIPHENHYDRAMINE [Suspect]
     Active Substance: DIPHENHYDRAMINE
     Indication: Drug therapy
     Dosage: 50MG EVERY 2 WEEKS INTRAVENOUSLY?
     Dates: start: 202205
  3. heparin l/l flush syringe [Concomitant]
  4. EPINEPHRINE [Concomitant]
     Active Substance: EPINEPHRINE
  5. DROXIDOPA [Concomitant]
     Active Substance: DROXIDOPA
  6. METHYLPRED SOD SUCC [Concomitant]
  7. BACTERIOSTATIC WATER MDV [Concomitant]

REACTIONS (1)
  - Cystitis [None]
